FAERS Safety Report 7276021-0 (Version None)
Quarter: 2011Q1

REPORT INFORMATION
  Report Type: 
  Country: None (occurrence: None)
  Receive Date: 20110204
  Receipt Date: 20110128
  Transmission Date: 20110831
  Serious: Yes (Death)
  Sender: FDA-Public Use
  Company Number: B0697370A

PATIENT
  Age: 18 Year
  Sex: Female

DRUGS (6)
  1. LIDOCAINE HYDROCHLORIDE [Concomitant]
     Route: 065
  2. MUCOSTA [Concomitant]
     Route: 048
  3. VEEN F [Concomitant]
     Route: 042
  4. EPINEPHRINE [Concomitant]
     Route: 065
  5. RELENZA [Suspect]
     Indication: INFLUENZA
     Route: 055
     Dates: start: 20110126
  6. MEYLON [Concomitant]
     Route: 042

REACTIONS (2)
  - HYPOTHERMIA [None]
  - DEPRESSED LEVEL OF CONSCIOUSNESS [None]
